FAERS Safety Report 18962425 (Version 1)
Quarter: 2021Q1

REPORT INFORMATION
  Report Type: Spontaneous
  Country: FR (occurrence: FR)
  Receive Date: 20210303
  Receipt Date: 20210303
  Transmission Date: 20210420
  Serious: Yes (Other)
  Sender: FDA-Public Use
  Company Number: FR-ACCORD-218209

PATIENT
  Age: 92 Year
  Sex: Female
  Weight: 62 kg

DRUGS (11)
  1. DIPROSONE [Concomitant]
     Active Substance: BETAMETHASONE DIPROPIONATE
     Dosage: 0.5%
     Route: 003
  2. DOLIPRANE [Concomitant]
     Active Substance: ACETAMINOPHEN
     Route: 048
  3. KARDEGIC [Concomitant]
     Active Substance: ASPIRIN DL-LYSINE
     Route: 048
  4. CLINDAMYCIN. [Concomitant]
     Active Substance: CLINDAMYCIN
     Indication: INFECTION
     Dosage: 600MG/8H
     Route: 042
     Dates: start: 20201212, end: 20201215
  5. NORMACOL [Concomitant]
     Active Substance: HERBALS\KARAYA GUM
     Route: 054
  6. TOPALGIC [Concomitant]
     Route: 048
  7. LANSOYL [Concomitant]
     Active Substance: MINERAL OIL
     Dosage: 2X/D
     Route: 048
  8. FUNGIZONE [Concomitant]
     Active Substance: AMPHOTERICIN B
     Dosage: UNKNOWN DATE
     Route: 048
  9. RIFAMPICIN [Concomitant]
     Active Substance: RIFAMPIN
     Indication: INFECTION
     Dosage: 600MG/J
     Route: 048
     Dates: start: 20201215
  10. DAPTOMYCIN. [Suspect]
     Active Substance: DAPTOMYCIN
     Indication: ARTHRITIS INFECTIVE
     Dosage: 500MG/24H
     Route: 042
     Dates: start: 20201210, end: 20210106
  11. EDUCTYL [Concomitant]
     Active Substance: POTASSIUM BITARTRATE\SODIUM BICARBONATE
     Route: 054

REACTIONS (2)
  - Lung opacity [Recovering/Resolving]
  - Off label use [Unknown]

NARRATIVE: CASE EVENT DATE: 20210104
